FAERS Safety Report 12938234 (Version 2)
Quarter: 2016Q4

REPORT INFORMATION
  Report Type: Spontaneous
  Country: US (occurrence: US)
  Receive Date: 20161114
  Receipt Date: 20161125
  Transmission Date: 20170207
  Serious: Yes (Death)
  Sender: FDA-Public Use
  Company Number: US-ACADIA PHARMACEUTICALS INC.-ACA-2016-000961

PATIENT
  Age: 77 Year
  Sex: Female
  Weight: 49.89 kg

DRUGS (3)
  1. NUPLAZID [Suspect]
     Active Substance: PIMAVANSERIN TARTRATE
     Indication: DELUSION
  2. NUPLAZID [Suspect]
     Active Substance: PIMAVANSERIN TARTRATE
     Indication: PARKINSON^S DISEASE PSYCHOSIS
  3. NUPLAZID [Suspect]
     Active Substance: PIMAVANSERIN TARTRATE
     Indication: HALLUCINATION
     Dosage: 34 MG, QD
     Route: 048
     Dates: start: 201609, end: 20161012

REACTIONS (7)
  - Asthenia [Unknown]
  - Respiratory disorder [Fatal]
  - Decreased appetite [Unknown]
  - Dysgeusia [Unknown]
  - Fall [Unknown]
  - Treatment noncompliance [Unknown]
  - Eating disorder [Unknown]

NARRATIVE: CASE EVENT DATE: 2016
